FAERS Safety Report 4964823-2 (Version None)
Quarter: 2006Q2

REPORT INFORMATION
  Report Type: 
  Country: None (occurrence: None)
  Receive Date: 20060403
  Receipt Date: 20060324
  Transmission Date: 20061013
  Serious: Yes (Hospitalization)
  Sender: FDA-Public Use
  Company Number: 200611155GDS

PATIENT
  Age: 65 Year
  Sex: Female

DRUGS (16)
  1. ASPIRIN CARDIO (ACETYLSALICYLIC ACID) [Suspect]
     Indication: CARDIAC FAILURE
     Dosage: 100 MG, TOTAL DAILY, ORAL
     Route: 048
     Dates: start: 20040101
  2. QUININE SULFATE [Suspect]
     Indication: MUSCLE SPASMS
     Dosage: 250 MG, TOTAL DAILY, ORAL
     Route: 048
     Dates: start: 20051201, end: 20051228
  3. SPIRONOLACTONE [Concomitant]
  4. NADROPARINE [Concomitant]
  5. CLOPIDOGREL [Concomitant]
  6. LOSARTAN POTASSIUM [Concomitant]
  7. TORSEMIDE [Suspect]
     Indication: HYPERTENSION
     Dosage: 40 MG, TOTAL DAILY, ORAL
     Route: 048
     Dates: start: 20050301
  8. FUROSEMIDE [Suspect]
     Indication: CARDIAC FAILURE CONGESTIVE
     Dosage: 20MG, INTRAVENOUS
     Route: 042
     Dates: start: 20051208
  9. ESOMEPRAZOLE [Suspect]
     Indication: DYSPEPSIA
     Dosage: 40 MG, TOTAL DAILY, ORAL
     Route: 048
     Dates: start: 20051202, end: 20060112
  10. FERRIC HYDROXIDE (FERRIC HYDROXIDE POLYMALTOSE) [Suspect]
     Indication: RED BLOOD CELL ABNORMALITY
     Dosage: 100 MG, TOTAL DAILY, ORAL
     Route: 048
     Dates: start: 20050301, end: 20051228
  11. ALPRAZOLAM [Concomitant]
  12. FLUVASTATIN [Concomitant]
  13. PARACETAMOL [Concomitant]
  14. GABAPENTIN [Concomitant]
  15. PRAMIPREXOLE [Concomitant]
  16. ZOLPIDEM TARTRATE [Concomitant]

REACTIONS (2)
  - HAEMOLYTIC ANAEMIA [None]
  - SYNCOPE [None]
